FAERS Safety Report 8358740-8 (Version None)
Quarter: 2012Q2

REPORT INFORMATION
  Report Type: 
  Country: None (occurrence: None)
  Receive Date: 20120514
  Receipt Date: 20120504
  Transmission Date: 20120825
  Serious: Yes (Hospitalization)
  Sender: FDA-Public Use
  Company Number: US-GENZYME-FABR-1002493

PATIENT
  Sex: Male
  Weight: 81.8 kg

DRUGS (1)
  1. FABRAZYME [Suspect]
     Indication: FABRY'S DISEASE
     Dosage: 70 MG, Q2W
     Route: 042
     Dates: start: 20040401

REACTIONS (2)
  - CARDIAC VALVE DISEASE [None]
  - ARTERIAL OCCLUSIVE DISEASE [None]
